FAERS Safety Report 4378463-X (Version None)
Quarter: 2004Q2

REPORT INFORMATION
  Report Type: 
  Country: None (occurrence: None)
  Receive Date: 20040609
  Receipt Date: 20040526
  Transmission Date: 20050107
  Serious: Yes (Hospitalization)
  Sender: FDA-Public Use
  Company Number: S04-USA-03005-01

PATIENT
  Age: 82 Year
  Sex: Male

DRUGS (7)
  1. NAMENDA [Suspect]
     Indication: DEMENTIA
     Dosage: 10 MG BID, PO
     Route: 048
  2. NAMENDA [Suspect]
     Indication: DEMENTIA
     Dates: start: 20040212
  3. ARICEPT [Concomitant]
  4. ATENOLOL [Concomitant]
  5. MULTIVITAMIN [Concomitant]
  6. ASPIRIN [Concomitant]
  7. TRIAMTERENE/HYDROCHLOROTHIAZIDE (HYDROCHLOROTHIAZIDE/TRIAMTERENE) [Concomitant]

REACTIONS (7)
  - ASTHENIA [None]
  - BLOOD SODIUM DECREASED [None]
  - CONFUSIONAL STATE [None]
  - CONVULSION [None]
  - COORDINATION ABNORMAL [None]
  - FALL [None]
  - RENAL FAILURE [None]
